FAERS Safety Report 21758852 (Version 1)
Quarter: 2022Q4

REPORT INFORMATION
  Report Type: Other
  Country: FR (occurrence: FR)
  Receive Date: 20221221
  Receipt Date: 20221221
  Transmission Date: 20230113
  Serious: Yes (Death)
  Sender: FDA-Public Use
  Company Number: None

PATIENT

DRUGS (2)
  1. ACETAMINOPHEN [Suspect]
     Active Substance: ACETAMINOPHEN
     Indication: Gait disturbance
     Dosage: UNK
     Route: 048
     Dates: start: 202208, end: 20221121
  2. TRAMADOL [Suspect]
     Active Substance: TRAMADOL
     Indication: Gait disturbance
     Dosage: NON PR?CIS?
     Route: 048
     Dates: start: 202208, end: 20221121

REACTIONS (3)
  - Haemodynamic instability [Fatal]
  - Hepatitis fulminant [Fatal]
  - Overdose [Fatal]

NARRATIVE: CASE EVENT DATE: 20221122
